FAERS Safety Report 4877509-X (Version None)
Quarter: 2006Q1

REPORT INFORMATION
  Report Type: 
  Country: None (occurrence: None)
  Receive Date: 20060109
  Receipt Date: 20060109
  Transmission Date: 20060701
  Serious: Yes (Disabling)
  Sender: FDA-Public Use
  Company Number: None

PATIENT
  Age: 33 Year
  Sex: Female
  Weight: 52.1637 kg

DRUGS (1)
  1. DMSO 70% LYNCOURT PHARMACY [Suspect]
     Dosage: 70 % 4 DAYS TOPICAL
     Route: 061
     Dates: start: 20030503, end: 20030507

REACTIONS (5)
  - GRANULOMA [None]
  - OFF LABEL USE [None]
  - OPEN WOUND [None]
  - POST PROCEDURAL COMPLICATION [None]
  - SUTURE RUPTURE [None]
